FAERS Safety Report 4813034-X (Version None)
Quarter: 2006Q1

REPORT INFORMATION
  Report Type: 
  Country: None (occurrence: None)
  Receive Date: 20051026
  Receipt Date: 20051013
  Transmission Date: 20060701
  Serious: Yes (Disabling, Other)
  Sender: FDA-Public Use
  Company Number: 2005141241

PATIENT
  Age: 74 Year
  Sex: Male
  Weight: 84.369 kg

DRUGS (3)
  1. PHENYTOIN SODIUM [Suspect]
     Indication: EPILEPSY
     Dosage: 300 MG (100 MG, 3 IN 1 D), ORAL
     Route: 048
     Dates: end: 20050101
  2. DONEPEZIL HCL [Suspect]
     Indication: DEMENTIA
     Dosage: 5 MG (1 IN 1 D),
     Dates: start: 20041213, end: 20050101
  3. LAMOTRIGINE [Suspect]
     Indication: EPILEPSY
     Dosage: 125 MG (1 IN 1 D), ORAL
     Route: 048
     Dates: start: 19970101

REACTIONS (2)
  - CONDITION AGGRAVATED [None]
  - CONVULSION [None]
